FAERS Safety Report 12833558 (Version 1)
Quarter: 2016Q4

REPORT INFORMATION
  Report Type: Spontaneous
  Country: US (occurrence: US)
  Receive Date: 20161010
  Receipt Date: 20161010
  Transmission Date: 20170207
  Serious: Yes (Hospitalization)
  Sender: FDA-Public Use
  Company Number: US-TARO-2016TAR00832

PATIENT
  Age: 5 Year
  Sex: Female
  Weight: 18.14 kg

DRUGS (5)
  1. LEVETIRACETAM ORAL SOLUTION 100MG/ML [Suspect]
     Active Substance: LEVETIRACETAM
     Indication: SEIZURE
     Dosage: 7 ML, 2X/DAY
     Route: 048
     Dates: start: 2011
  2. TRANXENE T-TAB [Concomitant]
     Active Substance: CLORAZEPATE DIPOTASSIUM
     Dosage: 3.75 MG, 2X/DAY
     Dates: start: 2011
  3. POLYETHYLENE GLYCOL 3350. [Concomitant]
     Active Substance: POLYETHYLENE GLYCOL 3350
     Indication: CONSTIPATION
     Dosage: UNK, AS NEEDED
  4. ZONAGRAN [Concomitant]
     Dosage: 4 ML, 2X/DAY
     Dates: start: 2011
  5. UNSPECIFIED ENEMAS [Concomitant]

REACTIONS (2)
  - Drug level decreased [Unknown]
  - Seizure [Recovered/Resolved]

NARRATIVE: CASE EVENT DATE: 20160907
